FAERS Safety Report 13034002 (Version 1)
Quarter: 2016Q4

REPORT INFORMATION
  Report Type: Spontaneous
  Country: US (occurrence: US)
  Receive Date: 20161215
  Receipt Date: 20161215
  Transmission Date: 20170207
  Serious: Yes (Death)
  Sender: FDA-Public Use
  Company Number: None

PATIENT
  Age: 73 Year
  Sex: Male

DRUGS (1)
  1. CAPECITABINE 500MG [Suspect]
     Active Substance: CAPECITABINE
     Indication: GASTRIC CANCER
     Dosage: CAPECITABINE 500MG - PO - 4 TABS TWICE A DAY
     Route: 048
     Dates: start: 20161111

REACTIONS (1)
  - Death [None]

NARRATIVE: CASE EVENT DATE: 20161212
